FAERS Safety Report 14683517 (Version 5)
Quarter: 2020Q3

REPORT INFORMATION
  Report Type: Spontaneous
  Country: US (occurrence: US)
  Receive Date: 20180327
  Receipt Date: 20200716
  Transmission Date: 20201102
  Serious: No
  Sender: FDA-Public Use
  Company Number: US-PFIZER INC-2018126172

PATIENT
  Age: 67 Year
  Sex: Female

DRUGS (2)
  1. XELJANZ XR [Suspect]
     Active Substance: TOFACITINIB CITRATE
     Indication: RHEUMATOID ARTHRITIS
     Dosage: 11 MG, DAILY (ALWAYS TOOK AT APPROXIMATELY THE SAME TIME EACH DAY)
     Dates: end: 20200705
  2. XELJANZ XR [Suspect]
     Active Substance: TOFACITINIB CITRATE
     Indication: OSTEOARTHRITIS

REACTIONS (5)
  - Lymphocyte count decreased [Unknown]
  - Headache [Unknown]
  - White blood cell count decreased [Unknown]
  - Disturbance in attention [Unknown]
  - Limb injury [Unknown]
